FAERS Safety Report 13336658 (Version 1)
Quarter: 2017Q1

REPORT INFORMATION
  Report Type: Spontaneous
  Country: US (occurrence: US)
  Receive Date: 20170314
  Receipt Date: 20170314
  Transmission Date: 20170428
  Serious: Yes (Hospitalization)
  Sender: FDA-Public Use
  Company Number: None

PATIENT
  Age: 60 Year
  Sex: Male
  Weight: 67.2 kg

DRUGS (1)
  1. PENICILLIN [Suspect]
     Active Substance: PENICILLIN
     Indication: DENTAL DISORDER PROPHYLAXIS
     Dosage: ?MG EVERY DAY PO
     Route: 048
     Dates: start: 20161108, end: 20161111

REACTIONS (2)
  - Asthenia [None]
  - Myasthenia gravis crisis [None]

NARRATIVE: CASE EVENT DATE: 20161108
